FAERS Safety Report 5891015-5 (Version None)
Quarter: 2008Q3

REPORT INFORMATION
  Report Type: 
  Country: None (occurrence: None)
  Receive Date: 20080922
  Receipt Date: 20080916
  Transmission Date: 20090109
  Serious: Yes (Hospitalization)
  Sender: FDA-Public Use
  Company Number: B0537489A

PATIENT
  Age: 47 Year
  Sex: Female

DRUGS (3)
  1. VALTREX [Suspect]
     Indication: HERPES ZOSTER
     Dosage: 500MG THREE TIMES PER DAY
     Dates: start: 20080908, end: 20080909
  2. ACETAMINOPHEN W/ CODEINE [Concomitant]
  3. DIFENE [Concomitant]

REACTIONS (1)
  - CHEST PAIN [None]
